FAERS Safety Report 12893041 (Version 2)
Quarter: 2016Q4

REPORT INFORMATION
  Report Type: Report from Study
  Country: TW (occurrence: TW)
  Receive Date: 20161028
  Receipt Date: 20161123
  Transmission Date: 20170207
  Serious: Yes (Death, Other)
  Sender: FDA-Public Use
  Company Number: TW-BRISTOL-MYERS SQUIBB COMPANY-BMS-2016-082400

PATIENT
  Age: 75 Year
  Sex: Female
  Weight: 37 kg

DRUGS (1)
  1. ABATACEPT [Suspect]
     Active Substance: ABATACEPT
     Indication: RHEUMATOID ARTHRITIS
     Dosage: 500 MG, QMO
     Route: 065
     Dates: end: 20160902

REACTIONS (10)
  - Upper gastrointestinal haemorrhage [Unknown]
  - Hyponatraemia [Unknown]
  - Herpes simplex encephalitis [Unknown]
  - Mycobacterial infection [Fatal]
  - Gastric ulcer [Unknown]
  - Candida infection [Unknown]
  - Altered state of consciousness [Unknown]
  - Haemorrhagic anaemia [Unknown]
  - Pneumonia [Unknown]
  - Gastrooesophageal reflux disease [Unknown]

NARRATIVE: CASE EVENT DATE: 20150413
